FAERS Safety Report 9086030 (Version 1)
Quarter: 2013Q1

REPORT INFORMATION
  Report Type: Report from Study
  Country: US (occurrence: US)
  Receive Date: 20130131
  Receipt Date: 20130131
  Transmission Date: 20140127
  Serious: No
  Sender: FDA-Public Use
  Company Number: US-ABBOTT-12P-163-1010706-00

PATIENT
  Age: 43 Year
  Sex: Male

DRUGS (3)
  1. HUMIRA [Suspect]
     Indication: PSORIATIC ARTHROPATHY
     Route: 058
  2. CELEBREX [Concomitant]
     Indication: PAIN
  3. LAMICTAL [Concomitant]
     Indication: BIPOLAR DISORDER

REACTIONS (3)
  - Incorrect dose administered [Unknown]
  - Hypertension [Not Recovered/Not Resolved]
  - Pain [Unknown]
